FAERS Safety Report 9038749 (Version 1)
Quarter: 2013Q1

REPORT INFORMATION
  Report Type: Spontaneous
  Country: US (occurrence: None)
  Receive Date: 20130123
  Receipt Date: 20130123
  Transmission Date: 20140127
  Serious: No
  Sender: FDA-Public Use
  Company Number: None

PATIENT
  Age: 73 None
  Sex: Male

DRUGS (6)
  1. REVLIMID 10MG CELGENE [Suspect]
     Indication: MYELODYSPLASTIC SYNDROME
     Dosage: 10 MG QD X 21/28D  BY MOUTH
     Route: 048
     Dates: start: 201201, end: 201202
  2. EXJADE [Concomitant]
  3. LEVOTHYROXINE [Concomitant]
  4. FLUOXETINE [Concomitant]
  5. METHYLPHENIDATE [Concomitant]
  6. CHOLECALCIFEROL [Concomitant]

REACTIONS (1)
  - Pancytopenia [None]
